FAERS Safety Report 4803622-9 (Version None)
Quarter: 2005Q4

REPORT INFORMATION
  Report Type: 
  Country: None (occurrence: None)
  Receive Date: 20051011
  Receipt Date: 20050831
  Transmission Date: 20060501
  Serious: Yes (Hospitalization)
  Sender: FDA-Public Use
  Company Number: 05P-163-0309944-00

PATIENT
  Age: 8 Year
  Sex: Female

DRUGS (5)
  1. DEPAKOTE [Suspect]
     Indication: CONVULSION
     Dosage: 375 MG, 2 IN 1 D
  2. LEVOBUTEROL [Concomitant]
  3. METHOPRED [Concomitant]
  4. TOPIRAMATE [Concomitant]
  5. IBUPROFEN [Concomitant]

REACTIONS (3)
  - FOOD AVERSION [None]
  - FOOD CRAVING [None]
  - PNEUMONIA [None]
